FAERS Safety Report 24814148 (Version 1)
Quarter: 2025Q1

REPORT INFORMATION
  Report Type: Spontaneous
  Country: CA (occurrence: CA)
  Receive Date: 20250107
  Receipt Date: 20250107
  Transmission Date: 20250408
  Serious: Yes (Other)
  Sender: CELLTRION
  Company Number: CA-PFIZER INC-202400335391

PATIENT

DRUGS (6)
  1. INFLECTRA [Suspect]
     Active Substance: INFLIXIMAB-DYYB
     Indication: Crohn^s disease
     Route: 042
     Dates: start: 20241127
  2. INFLECTRA [Suspect]
     Active Substance: INFLIXIMAB-DYYB
     Route: 042
     Dates: start: 20241227
  3. ALLOPURINOL [Concomitant]
     Active Substance: ALLOPURINOL
  4. BUDESONIDE [Concomitant]
     Active Substance: BUDESONIDE
     Dates: start: 202305
  5. IMURAN [Concomitant]
     Active Substance: AZATHIOPRINE
     Dates: start: 202202
  6. MESALAMINE [Concomitant]
     Active Substance: MESALAMINE
     Dates: start: 202302

REACTIONS (2)
  - Nephrolithiasis [Recovered/Resolved]
  - Off label use [Unknown]

NARRATIVE: CASE EVENT DATE: 20240101
